FAERS Safety Report 11537279 (Version 3)
Quarter: 2015Q4

REPORT INFORMATION
  Report Type: Spontaneous
  Country: BR (occurrence: BR)
  Receive Date: 20150922
  Receipt Date: 20151030
  Transmission Date: 20160304
  Serious: Yes (Other)
  Sender: FDA-Public Use
  Company Number: PHHY2015BR113903

PATIENT
  Sex: Female
  Weight: 75 kg

DRUGS (2)
  1. DIOVAN [Suspect]
     Active Substance: VALSARTAN
     Indication: BLOOD PRESSURE INCREASED
     Dosage: 1 DF, QD
     Route: 048
  2. DIOVAN [Suspect]
     Active Substance: VALSARTAN
     Dosage: 1 DF, BID (ONE IN THE MORNIGN AND ONE AT NIGHT)
     Route: 048

REACTIONS (2)
  - Fall [Recovering/Resolving]
  - Blood pressure increased [Recovered/Resolved]
